FAERS Safety Report 8889099 (Version 1)
Quarter: 2012Q4

REPORT INFORMATION
  Report Type: 
  Country: CH (occurrence: CH)
  Receive Date: 20121106
  Receipt Date: 20121106
  Transmission Date: 20130627
  Serious: Yes (Congenital Anomaly, Other)
  Sender: FDA-Public Use
  Company Number: CH-TEVA-366979ISR

PATIENT
  Age: 0 None
  Sex: Male
  Weight: 2.03 kg

DRUGS (3)
  1. CLARITHROCIN [Suspect]
     Indication: BRONCHITIS
     Dosage: 1000 Milligram Daily;
     Route: 064
     Dates: start: 20111101, end: 20111106
  2. AMOXICILLIN\CLAVULANATE POTASSIUM [Suspect]
     Indication: BRONCHITIS
     Dosage: 1875 Milligram Daily;
     Route: 064
     Dates: start: 20111107, end: 20111114
  3. YASMIN [Suspect]
     Route: 064
     Dates: start: 20111014, end: 20111104

REACTIONS (3)
  - Foetal growth restriction [Recovered/Resolved]
  - Premature baby [Recovered/Resolved]
  - Exposure during pregnancy [Recovered/Resolved]
